FAERS Safety Report 5107416-9 (Version None)
Quarter: 2006Q3

REPORT INFORMATION
  Report Type: 
  Country: None (occurrence: None)
  Receive Date: 20060731
  Receipt Date: 20060403
  Transmission Date: 20061208
  Serious: No
  Sender: FDA-Public Use
  Company Number: 2006PV011397

PATIENT
  Age: 52 Year
  Sex: Male
  Weight: 143.3367 kg

DRUGS (5)
  1. BYETTA [Suspect]
     Indication: GLUCOSE TOLERANCE IMPAIRED
     Dosage: SEE IMAGE
     Route: 058
     Dates: start: 20060218, end: 20060322
  2. BYETTA [Suspect]
     Indication: GLUCOSE TOLERANCE IMPAIRED
     Dosage: SEE IMAGE
     Route: 058
     Dates: start: 20060323
  3. COREG [Concomitant]
  4. LIPITOR [Concomitant]
  5. PROBENECID [Concomitant]

REACTIONS (7)
  - BLADDER DISCOMFORT [None]
  - BLADDER PAIN [None]
  - DIARRHOEA [None]
  - MICTURITION URGENCY [None]
  - PENILE PAIN [None]
  - POLLAKIURIA [None]
  - TESTICULAR PAIN [None]
